FAERS Safety Report 9207600 (Version 2)
Quarter: 2013Q3

REPORT INFORMATION
  Report Type: Report from Study
  Country: JP (occurrence: JP)
  Receive Date: 20130403
  Receipt Date: 20130904
  Transmission Date: 20140515
  Serious: Yes (Death)
  Sender: FDA-Public Use
  Company Number: JP-ROCHE-1207156

PATIENT
  Age: 55 Year
  Sex: Male

DRUGS (3)
  1. BEVACIZUMAB [Suspect]
     Indication: GLIOBLASTOMA
     Route: 042
  2. TEMOZOLOMIDE [Concomitant]
     Indication: GLIOBLASTOMA
     Dosage: DOSAGE IS UNCERTAIN.
     Route: 065
  3. TEMOZOLOMIDE [Concomitant]
     Dosage: MAINTENANCE
     Route: 065

REACTIONS (1)
  - Glioblastoma [Fatal]
